FAERS Safety Report 10758795 (Version 1)
Quarter: 2015Q1

REPORT INFORMATION
  Report Type: Spontaneous
  Country: US (occurrence: None)
  Receive Date: 20150123
  Receipt Date: 20150123
  Transmission Date: 20150721
  Serious: No
  Sender: FDA-Public Use
  Company Number: TPA2012A07400

PATIENT
  Age: 62 Year
  Sex: Male
  Weight: 72.1 kg

DRUGS (4)
  1. ZEMPLAR [Concomitant]
     Active Substance: PARICALCITOL
  2. VENOFER (SACCHARATED IRON OXIDE) [Concomitant]
  3. HEPARIN [Concomitant]
     Active Substance: HEPARIN SODIUM
  4. OMONTYS [Suspect]
     Active Substance: PEGINESATIDE
     Indication: NEPHROGENIC ANAEMIA
     Route: 042
     Dates: start: 20120901, end: 20120901

REACTIONS (3)
  - Dyspnoea [None]
  - Chest discomfort [None]
  - Chest pain [None]

NARRATIVE: CASE EVENT DATE: 20120901
